FAERS Safety Report 16112466 (Version 1)
Quarter: 2019Q1

REPORT INFORMATION
  Report Type: Spontaneous
  Country: US (occurrence: US)
  Receive Date: 20190325
  Receipt Date: 20190325
  Transmission Date: 20190418
  Serious: No
  Sender: FDA-Public Use
  Company Number: US-PFIZER INC-2019120291

PATIENT
  Age: 56 Year
  Sex: Female

DRUGS (2)
  1. NITROGLYCERIN. [Suspect]
     Active Substance: NITROGLYCERIN
     Dosage: UNK
  2. HERCEPTIN [Suspect]
     Active Substance: TRASTUZUMAB
     Dosage: UNK

REACTIONS (1)
  - Drug hypersensitivity [Unknown]
